FAERS Safety Report 9302984 (Version 1)
Quarter: 2013Q2

REPORT INFORMATION
  Report Type: Spontaneous
  Country: US (occurrence: US)
  Receive Date: 20130522
  Receipt Date: 20130522
  Transmission Date: 20140414
  Serious: Yes (Other)
  Sender: FDA-Public Use
  Company Number: US-BRISTOL-MYERS SQUIBB COMPANY-17293028

PATIENT
  Age: 52 Year
  Sex: Female

DRUGS (2)
  1. ORENCIA [Suspect]
     Indication: RHEUMATOID ARTHRITIS
     Route: 042
     Dates: start: 20121220
  2. ABATACEPT SUBQ INJECTION 125MG/ML [Suspect]
     Indication: RHEUMATOID ARTHRITIS
     Dosage: NO OF INF:5?LAST INF:20DEC2012,04MAY13
     Route: 058
     Dates: start: 201212

REACTIONS (5)
  - Pharyngeal oedema [Unknown]
  - Swollen tongue [Unknown]
  - Dysphagia [Unknown]
  - Oedema mouth [Unknown]
  - Rheumatoid arthritis [Unknown]
